FAERS Safety Report 12679228 (Version 2)
Quarter: 2016Q3

REPORT INFORMATION
  Report Type: Spontaneous
  Country: GB (occurrence: GB)
  Receive Date: 20160824
  Receipt Date: 20160824
  Transmission Date: 20161109
  Serious: Yes (Hospitalization)
  Sender: FDA-Public Use
  Company Number: GB-CIPLA LTD.-2016GB12884

PATIENT

DRUGS (3)
  1. CITALOPRAM [Suspect]
     Active Substance: CITALOPRAM HYDROBROMIDE
     Indication: DEPRESSION
     Dosage: UNK
     Route: 065
  2. PREMPAK [Concomitant]
     Active Substance: ESTROGENS, CONJUGATED\NORGESTREL
     Indication: HORMONE REPLACEMENT THERAPY
     Dosage: UNK
     Route: 065
  3. RED WINE [Suspect]
     Active Substance: RED WINE
     Dosage: UNK
     Route: 048

REACTIONS (5)
  - Suicidal ideation [Unknown]
  - Depressed mood [Recovered/Resolved]
  - Angle closure glaucoma [Recovered/Resolved]
  - Treatment noncompliance [Unknown]
  - Intentional overdose [Unknown]

NARRATIVE: CASE EVENT DATE: 200306
